FAERS Safety Report 9118769 (Version 2)
Quarter: 2013Q3

REPORT INFORMATION
  Report Type: Spontaneous
  Country: US (occurrence: US)
  Receive Date: 20130226
  Receipt Date: 20130725
  Transmission Date: 20140515
  Serious: Yes (Other)
  Sender: FDA-Public Use
  Company Number: US-UCBSA-078833

PATIENT
  Sex: Female

DRUGS (3)
  1. LORTAB [Suspect]
     Indication: BACK PAIN
     Dosage: 10/500MG; 1 TABLET 4 TIMES A DAY
  2. DURAGESIC [Concomitant]
     Indication: PAIN
  3. LISINOPRIL [Concomitant]
     Indication: BLOOD PRESSURE

REACTIONS (5)
  - Fracture [Unknown]
  - Osteoporosis [Not Recovered/Not Resolved]
  - Spinal disorder [Not Recovered/Not Resolved]
  - Foot fracture [Recovered/Resolved]
  - Wrist fracture [Recovered/Resolved]
